FAERS Safety Report 23851401 (Version 1)
Quarter: 2024Q2

REPORT INFORMATION
  Report Type: Spontaneous
  Country: FR (occurrence: FR)
  Receive Date: 20240514
  Receipt Date: 20240514
  Transmission Date: 20240716
  Serious: Yes (Life-Threatening, Hospitalization)
  Sender: FDA-Public Use
  Company Number: FR-002147023-NVSC2024FR100274

PATIENT
  Age: 60 Year
  Sex: Male
  Weight: 46 kg

DRUGS (7)
  1. CARBOPLATIN [Suspect]
     Active Substance: CARBOPLATIN
     Indication: Lung carcinoma cell type unspecified stage IV
     Dosage: 1 DOSAGE FORM (3 WEEKS) (C1)
     Route: 065
     Dates: start: 20231122, end: 20231122
  2. CARBOPLATIN [Suspect]
     Active Substance: CARBOPLATIN
     Dosage: 1 DOSAGE FORM (3 WEEKS) (C2)
     Route: 065
     Dates: start: 20231221, end: 20231221
  3. KEYTRUDA [Suspect]
     Active Substance: PEMBROLIZUMAB
     Indication: Lung carcinoma cell type unspecified stage IV
     Dosage: 1 DOSAGE FORM (3 WEEKS) (C1)
     Route: 065
     Dates: start: 20231122, end: 20231122
  4. KEYTRUDA [Suspect]
     Active Substance: PEMBROLIZUMAB
     Dosage: 1 DOSAGE FORM (3 WEEKS) (C2)
     Route: 065
     Dates: start: 20231221, end: 20231221
  5. PEMETREXED [Suspect]
     Active Substance: PEMETREXED
     Indication: Lung carcinoma cell type unspecified stage IV
     Dosage: 1 DOSAGE FORM (3 WEEKS) (C1)
     Route: 065
     Dates: start: 20231122, end: 20231122
  6. PEMETREXED [Suspect]
     Active Substance: PEMETREXED
     Dosage: 1 DOSAGE FORM (3 WEEKS) (C2)
     Route: 065
     Dates: start: 20231221, end: 20231221
  7. ZOMETA [Suspect]
     Active Substance: ZOLEDRONIC ACID
     Indication: Lung carcinoma cell type unspecified stage IV
     Dosage: 1 DOSAGE FORM, (TOTAL)
     Route: 065
     Dates: start: 20231222, end: 20231222

REACTIONS (1)
  - Lichenoid keratosis [Recovered/Resolved]

NARRATIVE: CASE EVENT DATE: 20231231
